FAERS Safety Report 25371090 (Version 1)
Quarter: 2025Q2

REPORT INFORMATION
  Report Type: Report from Study
  Country: US (occurrence: US)
  Receive Date: 20250529
  Receipt Date: 20250529
  Transmission Date: 20250716
  Serious: Yes (Other)
  Sender: ABBVIE
  Company Number: US-ABBVIE-5977374

PATIENT
  Sex: Female

DRUGS (1)
  1. HUMIRA [Suspect]
     Active Substance: ADALIMUMAB
     Indication: Rheumatoid arthritis
     Dates: start: 202207

REACTIONS (8)
  - Neoplasm malignant [Unknown]
  - Aortic valve replacement [Unknown]
  - Allergic cough [Not Recovered/Not Resolved]
  - Pain [Not Recovered/Not Resolved]
  - Thyroidectomy [Unknown]
  - Hysterotomy [Unknown]
  - Pain in extremity [Unknown]
  - Back pain [Unknown]
